FAERS Safety Report 7122070-2 (Version None)
Quarter: 2010Q4

REPORT INFORMATION
  Report Type: 
  Country: None (occurrence: None)
  Receive Date: 20101124
  Receipt Date: 20101118
  Transmission Date: 20110411
  Serious: Yes (Life-Threatening, Hospitalization)
  Sender: FDA-Public Use
  Company Number: Z0006055A

PATIENT
  Age: 79 Year
  Sex: Male
  Weight: 91.6 kg

DRUGS (1)
  1. PAZOPANIB [Suspect]
     Dosage: 5MGML THREE TIMES PER DAY
     Route: 047
     Dates: start: 20100819

REACTIONS (1)
  - AORTIC ANEURYSM [None]
